FAERS Safety Report 12644442 (Version 2)
Quarter: 2016Q3

REPORT INFORMATION
  Report Type: Spontaneous
  Country: JP (occurrence: JP)
  Receive Date: 20160811
  Receipt Date: 20160912
  Transmission Date: 20161109
  Serious: Yes (Hospitalization)
  Sender: FDA-Public Use
  Company Number: PHJP2016JP016505

PATIENT
  Age: 52 Year
  Sex: Male

DRUGS (1)
  1. ZYKADIA [Suspect]
     Active Substance: CERITINIB
     Indication: NON-SMALL CELL LUNG CANCER
     Dosage: 600 MG, QD
     Route: 048
     Dates: start: 20160609

REACTIONS (5)
  - Ileus [Unknown]
  - Diarrhoea [Unknown]
  - Hepatitis acute [Unknown]
  - Flatulence [Unknown]
  - Chest pain [Unknown]

NARRATIVE: CASE EVENT DATE: 20160805
